FAERS Safety Report 5063568-0 (Version None)
Quarter: 2006Q3

REPORT INFORMATION
  Report Type: 
  Country: None (occurrence: None)
  Receive Date: 20060727
  Receipt Date: 20060323
  Transmission Date: 20061208
  Serious: Yes (Hospitalization)
  Sender: FDA-Public Use
  Company Number: FR-ROCHE-441698

PATIENT
  Age: 46 Year
  Sex: Female
  Weight: 62 kg

DRUGS (3)
  1. XELODA [Suspect]
     Indication: BREAST CANCER
     Route: 048
     Dates: start: 20060309, end: 20060320
  2. HERCEPTIN [Concomitant]
  3. ZOMETA [Concomitant]

REACTIONS (11)
  - ABDOMINAL PAIN [None]
  - ARTHRALGIA [None]
  - HYPERGLYCAEMIA [None]
  - INFLAMMATION [None]
  - MYALGIA [None]
  - NAUSEA [None]
  - PETECHIAE [None]
  - PROTEINURIA [None]
  - RECTAL HAEMORRHAGE [None]
  - VASCULAR PURPURA [None]
  - VOMITING [None]
